FAERS Safety Report 14730903 (Version 2)
Quarter: 2018Q2

REPORT INFORMATION
  Report Type: Spontaneous
  Country: US (occurrence: US)
  Receive Date: 20180406
  Receipt Date: 20180425
  Transmission Date: 20180711
  Serious: No
  Sender: FDA-Public Use
  Company Number: US-MYLANLABS-2018M1019933

PATIENT
  Age: 38 Year
  Sex: Female

DRUGS (1)
  1. METHIMAZOLE TABLETS, USP [Suspect]
     Active Substance: METHIMAZOLE
     Indication: HYPERTHYROIDISM
     Dosage: 5 MG, 3XW
     Route: 048
     Dates: start: 20180206

REACTIONS (9)
  - Inappropriate schedule of drug administration [Not Recovered/Not Resolved]
  - Paraesthesia [Unknown]
  - Hypoaesthesia [Unknown]
  - Product substitution issue [Unknown]
  - Muscular weakness [Unknown]
  - Dysgeusia [Unknown]
  - Ageusia [Unknown]
  - Formication [Unknown]
  - Arthralgia [Unknown]
